FAERS Safety Report 6725510-3 (Version None)
Quarter: 2010Q2

REPORT INFORMATION
  Report Type: 
  Country: None (occurrence: None)
  Receive Date: 20100514
  Receipt Date: 20100504
  Transmission Date: 20101027
  Serious: Yes (Hospitalization)
  Sender: FDA-Public Use
  Company Number: SE-AMGEN-QUU410896

PATIENT
  Sex: Female

DRUGS (3)
  1. ENBREL [Suspect]
     Indication: RHEUMATOID ARTHRITIS
     Dosage: DOSE 50 MG WEEKLY
     Route: 058
     Dates: start: 20090119
  2. PREDNISOLONE [Concomitant]
  3. METHOTREXATE [Concomitant]

REACTIONS (1)
  - HUMERUS FRACTURE [None]
